FAERS Safety Report 8554045-0 (Version None)
Quarter: 2012Q3

REPORT INFORMATION
  Report Type: 
  Country: None (occurrence: None)
  Receive Date: 20120731
  Receipt Date: 20120726
  Transmission Date: 20120928
  Serious: Yes (Death, Hospitalization, Congenital Anomaly)
  Sender: FDA-Public Use
  Company Number: US-GILEAD-2011-0035224

PATIENT
  Sex: Female

DRUGS (10)
  1. ACETAMINOPHEN [Concomitant]
     Dosage: UNK
     Dates: start: 20100921, end: 20100924
  2. VITAMIN B COMPLEX CAP [Concomitant]
     Dosage: UNK
     Dates: start: 20100630, end: 20100706
  3. IBUPROFEN [Concomitant]
     Dosage: UNK
     Dates: start: 20100630, end: 20100706
  4. EMTRICITABINE/TENOFOVIR DISOPROXIL FUMARATE [Suspect]
     Indication: PROPHYLAXIS AGAINST HIV INFECTION
     Route: 064
     Dates: start: 20090728, end: 20100308
  5. ARTEMETHER W/LUMEFANTRINE [Concomitant]
     Dosage: UNK
     Dates: start: 20100921, end: 20100924
  6. ACETAMINOPHEN [Concomitant]
     Dosage: UNK
     Dates: start: 20100209, end: 20100212
  7. SULFAMETHOXAZOLE AND TRIMETHOPRIM [Concomitant]
     Dosage: UNK
     Dates: start: 20100825, end: 20100830
  8. METRONIDAZOLE [Concomitant]
     Dosage: UNK
     Dates: start: 20101029, end: 20101103
  9. ACETAMINOPHEN [Concomitant]
     Dosage: UNK
     Dates: start: 20100630, end: 20100709
  10. COTRIM [Concomitant]
     Dosage: UNK
     Dates: start: 20101029, end: 20101104

REACTIONS (3)
  - EXOMPHALOS [None]
  - VENTRICULAR SEPTAL DEFECT [None]
  - CARDIAC MURMUR [None]
